FAERS Safety Report 16675193 (Version 3)
Quarter: 2019Q4

REPORT INFORMATION
  Report Type: Spontaneous
  Country: US (occurrence: US)
  Receive Date: 20190806
  Receipt Date: 20191019
  Transmission Date: 20200122
  Serious: Yes (Death, Life-Threatening, Hospitalization)
  Sender: FDA-Public Use
  Company Number: US-ROCHE-2363210

PATIENT
  Age: 75 Year
  Sex: Male

DRUGS (2)
  1. CAPECITABINE. [Suspect]
     Active Substance: CAPECITABINE
     Indication: INTRADUCTAL PAPILLARY MUCINOUS NEOPLASM
     Dosage: AS 1150 MG BID ON DAYS 1-21
     Route: 048
  2. CAPECITABINE. [Suspect]
     Active Substance: CAPECITABINE
     Indication: DUCTAL ADENOCARCINOMA OF PANCREAS

REACTIONS (9)
  - Pulseless electrical activity [Recovered/Resolved]
  - Respiratory failure [Not Recovered/Not Resolved]
  - Pulmonary oedema [Not Recovered/Not Resolved]
  - Pulmonary fibrosis [Not Recovered/Not Resolved]
  - Diffuse alveolar damage [Fatal]
  - Pulmonary toxicity [Not Recovered/Not Resolved]
  - Atelectasis [Not Recovered/Not Resolved]
  - Acute respiratory distress syndrome [Not Recovered/Not Resolved]
  - Cardiac arrest [Recovered/Resolved]
